FAERS Safety Report 25148796 (Version 2)
Quarter: 2025Q2

REPORT INFORMATION
  Report Type: Spontaneous
  Country: CA (occurrence: CA)
  Receive Date: 20250402
  Receipt Date: 20250509
  Transmission Date: 20250717
  Serious: No
  Sender: Unknown Manufacturer
  Company Number: CA-MIRUM PHARMACEUTICALS, INC.-CA-MIR-25-00114

PATIENT

DRUGS (5)
  1. LIVMARLI [Suspect]
     Active Substance: MARALIXIBAT CHLORIDE
     Indication: Progressive familial intrahepatic cholestasis
     Dosage: 0.46 MILLILITER (70 MICROGRAM/KILOGRAM), QD 30 MIN BEFORE FOOD CONSUMPTION IN THE MORNING
     Route: 048
     Dates: start: 20250222, end: 20250224
  2. LIVMARLI [Suspect]
     Active Substance: MARALIXIBAT CHLORIDE
     Dosage: 1.83 MILLIGRAM (280 MCG/KG), QD
     Route: 048
     Dates: start: 20250224
  3. LIVMARLI [Suspect]
     Active Substance: MARALIXIBAT CHLORIDE
     Dosage: 4 MILLILITER, QD
     Route: 048
  4. HYDROXYZINE [Concomitant]
     Active Substance: HYDROXYZINE HYDROCHLORIDE
     Indication: Product used for unknown indication
     Route: 065
  5. HYDROXYZINE [Concomitant]
     Active Substance: HYDROXYZINE HYDROCHLORIDE
     Route: 065
     Dates: start: 20250222

REACTIONS (3)
  - Pruritus [Not Recovered/Not Resolved]
  - Bile acids increased [Not Recovered/Not Resolved]
  - Maternal exposure during pregnancy [Unknown]

NARRATIVE: CASE EVENT DATE: 20250222
